FAERS Safety Report 12919878 (Version 1)
Quarter: 2016Q4

REPORT INFORMATION
  Report Type: Report from Study
  Country: US (occurrence: US)
  Receive Date: 20161108
  Receipt Date: 20161108
  Transmission Date: 20170207
  Serious: Yes (Hospitalization)
  Sender: FDA-Public Use
  Company Number: US-EISAI MEDICAL RESEARCH-EC-2016-021126

PATIENT
  Age: 86 Year
  Sex: Male
  Weight: 78 kg

DRUGS (12)
  1. IMODIUM A-D [Concomitant]
     Active Substance: LOPERAMIDE HYDROCHLORIDE
  2. MULTIVITAMINS [Concomitant]
     Active Substance: VITAMINS
  3. AFINITOR [Interacting]
     Active Substance: EVEROLIMUS
     Indication: PRODUCT USED FOR UNKNOWN INDICATION
     Dosage: UNKNOWN
     Route: 048
  4. VITAMIN B12 [Concomitant]
     Active Substance: CYANOCOBALAMIN
  5. LENVIMA [Interacting]
     Active Substance: LENVATINIB
     Route: 048
     Dates: start: 20161009, end: 201610
  6. METOPROLOL SUCCINATE. [Concomitant]
     Active Substance: METOPROLOL SUCCINATE
  7. PROSCAR [Concomitant]
     Active Substance: FINASTERIDE
  8. LENVIMA [Suspect]
     Active Substance: LENVATINIB
     Indication: RENAL CELL CARCINOMA
     Route: 048
     Dates: start: 20161005, end: 20161008
  9. CALTRATE [Concomitant]
     Active Substance: CALCIUM CARBONATE
  10. BACTRIM DS [Concomitant]
     Active Substance: SULFAMETHOXAZOLE\TRIMETHOPRIM
  11. LENVIMA [Interacting]
     Active Substance: LENVATINIB
     Route: 048
     Dates: start: 201610, end: 20161026
  12. CALCIUM + D3 [Concomitant]
     Active Substance: CALCIUM\CHOLECALCIFEROL

REACTIONS (2)
  - Anaemia [Not Recovered/Not Resolved]
  - Rash [Not Recovered/Not Resolved]

NARRATIVE: CASE EVENT DATE: 20161026
